FAERS Safety Report 9359675 (Version 2)
Quarter: 2014Q1

REPORT INFORMATION
  Report Type: Spontaneous
  Country: GB (occurrence: GB)
  Receive Date: 20130620
  Receipt Date: 20140328
  Transmission Date: 20141002
  Serious: Yes (Other)
  Sender: FDA-Public Use
  Company Number: GB-US-EMD SERONO, INC.-7197000

PATIENT
  Age: 8 Year
  Sex: Female

DRUGS (1)
  1. SAIZEN [Suspect]
     Indication: GROWTH HORMONE DEFICIENCY
     Route: 058
     Dates: start: 20100212

REACTIONS (5)
  - Coeliac disease [Unknown]
  - Hypersensitivity [Unknown]
  - Diarrhoea [Unknown]
  - Abdominal pain [Unknown]
  - Drug dose omission [Unknown]
